FAERS Safety Report 6866826-X (Version None)
Quarter: 2010Q2

REPORT INFORMATION
  Report Type: 
  Country: None (occurrence: None)
  Receive Date: 20100610
  Receipt Date: 20100303
  Transmission Date: 20101027
  Serious: No
  Sender: FDA-Public Use
  Company Number: 2010SP013872

PATIENT
  Age: 45 Year
  Sex: Female

DRUGS (5)
  1. SAPHRIS [Suspect]
     Indication: DRUG USE FOR UNKNOWN INDICATION
     Dosage: 5 MG;BID;PO
     Route: 048
  2. LAMICTAL [Concomitant]
  3. WELLBUTRIN [Concomitant]
  4. CYMBALTA [Concomitant]
  5. LORAZEPAM [Concomitant]

REACTIONS (1)
  - OEDEMA [None]
